FAERS Safety Report 8934058 (Version 1)
Quarter: 2012Q4

REPORT INFORMATION
  Report Type: 
  Country: US (occurrence: US)
  Receive Date: 20121129
  Receipt Date: 20121129
  Transmission Date: 20130627
  Serious: Yes (Other)
  Sender: FDA-Public Use
  Company Number: US-BRISTOL-MYERS SQUIBB COMPANY-17140336

PATIENT
  Age: 78 Year
  Sex: Female

DRUGS (2)
  1. IPILIMUMAB [Suspect]
     Indication: MALIGNANT MELANOMA
  2. CEFAZOLIN [Suspect]
     Indication: URINARY TRACT INFECTION

REACTIONS (2)
  - Colitis [Unknown]
  - Clostridium difficile infection [Unknown]
